FAERS Safety Report 14349228 (Version 2)
Quarter: 2018Q1

REPORT INFORMATION
  Report Type: Spontaneous
  Country: US (occurrence: US)
  Receive Date: 20180104
  Receipt Date: 20180328
  Transmission Date: 20180509
  Serious: No
  Sender: FDA-Public Use
  Company Number: US-ASTRAZENECA-2017SF33226

PATIENT
  Age: 27943 Day
  Sex: Male

DRUGS (1)
  1. SYMBICORT [Suspect]
     Active Substance: BUDESONIDE\FORMOTEROL FUMARATE DIHYDRATE
     Dosage: 160/4.5 MCG 120 INHALATIONS UNKNOWN
     Route: 055

REACTIONS (2)
  - Hypoacusis [Unknown]
  - Product quality issue [Unknown]

NARRATIVE: CASE EVENT DATE: 20171222
